FAERS Safety Report 8275367-7 (Version None)
Quarter: 2012Q2

REPORT INFORMATION
  Report Type: 
  Country: None (occurrence: None)
  Receive Date: 20120411
  Receipt Date: 20120404
  Transmission Date: 20120825
  Serious: Yes (Death, Hospitalization)
  Sender: FDA-Public Use
  Company Number: JP-AMGEN-JPNCT2011007119

PATIENT
  Age: 58 Year
  Sex: Female
  Weight: 40 kg

DRUGS (11)
  1. TOPOTECAN [Concomitant]
     Indication: COLORECTAL CANCER
     Route: 041
     Dates: start: 20101109, end: 20110125
  2. MINOCYCLINE HYDROCHLORIDE [Concomitant]
     Dosage: UNK
     Route: 048
  3. CODEINE PHOSPHATE [Concomitant]
     Dosage: UNK
     Route: 048
  4. DEXALTIN [Concomitant]
     Route: 049
  5. ZOLPIDEM [Concomitant]
     Dosage: UNK
     Route: 048
  6. CLARITIN REDITABS [Concomitant]
     Route: 048
  7. LOXONIN [Concomitant]
     Dosage: UNK
     Route: 048
  8. ANTIHISTAMINES [Concomitant]
     Indication: PROPHYLAXIS
     Route: 065
  9. PANITUMUMAB [Suspect]
     Indication: COLORECTAL CANCER
     Dosage: 6 MG/KG, Q2WK
     Route: 041
     Dates: start: 20101109, end: 20110125
  10. MUCOSTA [Concomitant]
     Dosage: UNK
     Route: 048
  11. MEDICON [Concomitant]
     Dosage: UNK
     Route: 048

REACTIONS (7)
  - HYPOMAGNESAEMIA [None]
  - IRON DEFICIENCY ANAEMIA [None]
  - COLORECTAL CANCER [None]
  - PRURITUS [None]
  - ELECTROCARDIOGRAM QT PROLONGED [None]
  - FEBRILE NEUTROPENIA [None]
  - HYPOCALCAEMIA [None]
